FAERS Safety Report 8271782 (Version 3)
Quarter: 2017Q3

REPORT INFORMATION
  Report Type: Report from Study
  Country: JP (occurrence: JP)
  Receive Date: 20111202
  Receipt Date: 20170914
  Transmission Date: 20171128
  Serious: Yes (Other)
  Sender: FDA-Public Use
  Company Number: JP-BRISTOL-MYERS SQUIBB COMPANY-15570021

PATIENT
  Age: 30 Year
  Sex: Female

DRUGS (8)
  1. RETROVIR [Suspect]
     Active Substance: ZIDOVUDINE
     Indication: HIV INFECTION
     Dosage: UNK
     Route: 042
     Dates: start: 20100629
  2. KALETRA [Suspect]
     Active Substance: LOPINAVIR\RITONAVIR
     Indication: HIV INFECTION
     Dosage: 1 DF, BID
     Route: 048
     Dates: start: 20091223, end: 20100726
  3. ATAZANAVIR SULFATE [Suspect]
     Active Substance: ATAZANAVIR SULFATE
     Indication: HIV INFECTION
     Dosage: 300 MG, QD
     Route: 048
     Dates: start: 20091101, end: 20091222
  4. GLUCOSE 5% [Concomitant]
     Active Substance: DEXTROSE
     Indication: PRODUCT USED FOR UNKNOWN INDICATION
     Dosage: UNK
     Route: 065
     Dates: start: 20100628, end: 20100629
  5. NORVIR [Suspect]
     Active Substance: RITONAVIR
     Indication: HIV INFECTION
     Dosage: 100 MG, QD
     Route: 048
     Dates: start: 20091101, end: 20091222
  6. STOCRIN [Concomitant]
     Active Substance: EFAVIRENZ
     Indication: HIV INFECTION
     Dosage: 600 MG, QD
     Route: 048
     Dates: start: 20100727, end: 20100809
  7. RITODRINE HCL [Concomitant]
     Active Substance: RITODRINE HYDROCHLORIDE
     Indication: PRODUCT USED FOR UNKNOWN INDICATION
     Dosage: UNK
     Route: 065
     Dates: start: 20100621, end: 20100622
  8. EPZICOM [Suspect]
     Active Substance: ABACAVIR SULFATE\LAMIVUDINE
     Indication: HIV INFECTION
     Dosage: 1 DF, QD
     Route: 048
     Dates: start: 20091101, end: 20110208

REACTIONS (7)
  - Maternal exposure during pregnancy [Recovered/Resolved]
  - Live birth [Unknown]
  - Premature delivery [Unknown]
  - Blood triglycerides increased [Recovered/Resolved]
  - Threatened labour [Recovered/Resolved]
  - Anaemia [Recovering/Resolving]
  - Caesarean section [Unknown]

NARRATIVE: CASE EVENT DATE: 20100420
